FAERS Safety Report 21588721 (Version 6)
Quarter: 2023Q2

REPORT INFORMATION
  Report Type: Report from Study
  Country: US (occurrence: US)
  Receive Date: 20221114
  Receipt Date: 20230424
  Transmission Date: 20230721
  Serious: Yes (Other)
  Sender: FDA-Public Use
  Company Number: US-INSMED, INC.-2022-03164-US

PATIENT
  Sex: Male

DRUGS (4)
  1. ARIKAYCE [Suspect]
     Active Substance: AMIKACIN
     Indication: Atypical mycobacterial infection
     Dosage: 590 MILLIGRAM, QD
     Route: 055
     Dates: start: 20221005, end: 20221102
  2. ARIKAYCE [Suspect]
     Active Substance: AMIKACIN
     Dosage: 590 MILLIGRAM, TIW
     Route: 055
     Dates: end: 202303
  3. ALBUTEROL [Concomitant]
     Active Substance: ALBUTEROL
     Indication: Premedication
     Dosage: 2 DOSAGE FORM PRIOR TO FIRST DOSE
     Route: 065
  4. AMIKACIN [Concomitant]
     Active Substance: AMIKACIN
     Indication: Product used for unknown indication
     Dosage: UNK
     Route: 042
     Dates: start: 2023

REACTIONS (6)
  - Oxygen saturation decreased [Unknown]
  - Asthma [Unknown]
  - Chest pain [Not Recovered/Not Resolved]
  - Pulmonary pain [Unknown]
  - Cough [Not Recovered/Not Resolved]
  - Dyspnoea [Not Recovered/Not Resolved]

NARRATIVE: CASE EVENT DATE: 20220101
